FAERS Safety Report 5154906-9 (Version None)
Quarter: 2006Q4

REPORT INFORMATION
  Report Type: 
  Country: None (occurrence: None)
  Receive Date: 20061121
  Receipt Date: 20061115
  Transmission Date: 20070319
  Serious: No
  Sender: FDA-Public Use
  Company Number: 2006PK02344

PATIENT
  Age: 10435 Day
  Sex: Male

DRUGS (4)
  1. SEROQUEL [Suspect]
     Indication: SCHIZOPHRENIA, PARANOID TYPE
     Route: 048
     Dates: start: 20010101, end: 20060904
  2. SEROQUEL [Suspect]
     Indication: SCHIZOPHRENIA, RESIDUAL TYPE
     Route: 048
     Dates: start: 20010101, end: 20060904
  3. SEROQUEL [Suspect]
     Dosage: STEPWISE DOSE REDUCTION DURING 4 WEEKS
     Route: 048
     Dates: start: 20060905
  4. SEROQUEL [Suspect]
     Dosage: STEPWISE DOSE REDUCTION DURING 4 WEEKS
     Route: 048
     Dates: start: 20060905

REACTIONS (1)
  - GRANULOCYTOPENIA [None]
